FAERS Safety Report 11576137 (Version 1)
Quarter: 2015Q3

REPORT INFORMATION
  Report Type: Spontaneous
  Country: US (occurrence: None)
  Receive Date: 20150929
  Receipt Date: 20150929
  Transmission Date: 20151125
  Serious: No
  Sender: FDA-Public Use
  Company Number: None

PATIENT
  Age: 57 Year
  Sex: Male
  Weight: 112.4 kg

DRUGS (2)
  1. PIPERCILLIN/TAZOBACTAM [Suspect]
     Active Substance: PIPERACILLIN SODIUM\TAZOBACTAM SODIUM
     Indication: PRODUCT USED FOR UNKNOWN INDICATION
     Route: 042
     Dates: start: 20150609, end: 20150612
  2. VANCOMYCIN [Suspect]
     Active Substance: VANCOMYCIN
     Indication: DRUG THERAPY
     Route: 042
     Dates: start: 20150608, end: 20150611

REACTIONS (6)
  - Duodenal ulcer [None]
  - Renal tubular necrosis [None]
  - Sepsis [None]
  - Rash erythematous [None]
  - Blister [None]
  - Gastrointestinal haemorrhage [None]

NARRATIVE: CASE EVENT DATE: 20150611
